FAERS Safety Report 9563976 (Version 1)
Quarter: 2013Q3

REPORT INFORMATION
  Report Type: Spontaneous
  Country: US (occurrence: US)
  Receive Date: 20130928
  Receipt Date: 20130928
  Transmission Date: 20140515
  Serious: No
  Sender: FDA-Public Use
  Company Number: US-009507513-1309USA010057

PATIENT
  Age: 5 Month
  Sex: Male

DRUGS (3)
  1. MK-7365 [Suspect]
     Indication: MALIGNANT MESENCHYMOMA
  2. VINCRISTINE SULFATE [Suspect]
     Indication: MALIGNANT MESENCHYMOMA
  3. IRINOTECAN HYDROCHLORIDE [Suspect]
     Indication: MALIGNANT MESENCHYMOMA

REACTIONS (1)
  - No therapeutic response [Unknown]
